APPROVED DRUG PRODUCT: OMEPRAZOLE
Active Ingredient: OMEPRAZOLE
Strength: 10MG
Dosage Form/Route: CAPSULE, DELAYED REL PELLETS;ORAL
Application: A203270 | Product #001 | TE Code: AB
Applicant: AUROBINDO PHARMA LTD
Approved: Aug 19, 2015 | RLD: No | RS: No | Type: RX